FAERS Safety Report 14458101 (Version 1)
Quarter: 2018Q1

REPORT INFORMATION
  Report Type: Other
  Country: US (occurrence: US)
  Receive Date: 20180130
  Receipt Date: 20180130
  Transmission Date: 20180509
  Serious: No
  Sender: FDA-Public Use
  Company Number: US-ACORDA-ACO_133788_2017

PATIENT
  Age: 71 Year
  Sex: Male

DRUGS (1)
  1. AMPYRA [Suspect]
     Active Substance: DALFAMPRIDINE
     Indication: MULTIPLE SCLEROSIS
     Dosage: UNK
     Route: 065
     Dates: start: 20161005, end: 20170203

REACTIONS (4)
  - Condition aggravated [Unknown]
  - Drug ineffective [Unknown]
  - General physical health deterioration [Unknown]
  - Gait disturbance [Unknown]

NARRATIVE: CASE EVENT DATE: 20161007
